FAERS Safety Report 6377539-5 (Version None)
Quarter: 2009Q3

REPORT INFORMATION
  Report Type: 
  Country: None (occurrence: None)
  Receive Date: 20090925
  Receipt Date: 20090921
  Transmission Date: 20100115
  Serious: Yes (Life-Threatening, Hospitalization, Disabling)
  Sender: FDA-Public Use
  Company Number: US-MERCK-0909USA02167

PATIENT
  Age: 48 Year

DRUGS (8)
  1. ISENTRESS [Suspect]
     Route: 065
  2. RITONAVIR [Concomitant]
     Route: 065
  3. ACYCLOVIR [Concomitant]
     Route: 065
  4. OMEGA-3 MARINE TRIGLYCERIDES [Concomitant]
     Route: 065
  5. PIOGLITAZONE HYDROCHLORIDE [Concomitant]
     Route: 065
  6. METFORMIN [Concomitant]
     Route: 065
  7. CELEBREX [Concomitant]
     Route: 065
  8. BENECOL [Concomitant]
     Route: 065

REACTIONS (1)
  - APLASTIC ANAEMIA [None]
